FAERS Safety Report 8227138-5 (Version None)
Quarter: 2012Q1

REPORT INFORMATION
  Report Type: 
  Country: None (occurrence: None)
  Receive Date: 20120322
  Receipt Date: 20120320
  Transmission Date: 20120608
  Serious: Yes (Other)
  Sender: FDA-Public Use
  Company Number: SE-AMGEN-SWESP2012017687

PATIENT

DRUGS (1)
  1. NPLATE [Suspect]
     Indication: PLATELET COUNT DECREASED

REACTIONS (1)
  - ACUTE MYELOID LEUKAEMIA [None]
